FAERS Safety Report 8483383-5 (Version None)
Quarter: 2012Q3

REPORT INFORMATION
  Report Type: 
  Country: None (occurrence: None)
  Receive Date: 20120702
  Receipt Date: 20120627
  Transmission Date: 20120928
  Serious: Yes (Other)
  Sender: FDA-Public Use
  Company Number: BR-PFIZER INC-2012024770

PATIENT
  Age: 49 Year
  Sex: Female
  Weight: 52 kg

DRUGS (8)
  1. LAMOTRIGINE [Concomitant]
     Indication: ANTIDEPRESSANT THERAPY
     Dosage: 25 MG, 1X/DAY AT DINNER
  2. PHENERGAN [Concomitant]
     Indication: ABDOMINAL DISCOMFORT
     Dosage: 2 TABLETS OF 25MG AT NIGHT
     Dates: start: 20120401
  3. SIMVASTATIN [Concomitant]
     Indication: BLOOD CHOLESTEROL
     Dosage: 20 MG, AT NIGHT (1X/DAY) AT NIGHT
     Dates: start: 20120401
  4. SERTRALINE [Concomitant]
     Indication: DEPRESSION
     Dosage: 1 TABLET OF 100MG AND 1 TABLET OF 50MG
     Dates: start: 19950101
  5. ESCITALOPRAM [Concomitant]
     Indication: ANTIDEPRESSANT THERAPY
     Dosage: 50 MG, 1X/DAY IN THE MORNING
  6. VARENICLINE TARTRATE [Suspect]
     Indication: SMOKING CESSATION THERAPY
     Dosage: UNK DF, 2X/DAY
     Dates: start: 20120120, end: 20120101
  7. ASPIRIN [Concomitant]
     Indication: ANTICOAGULANT THERAPY
     Dosage: 2 DF, 1X/DAY AT LUNCHTIME
     Dates: start: 20120401
  8. VARENICLINE TARTRATE [Suspect]
     Dosage: 1 DF, 2X/DAY
     Route: 048
     Dates: start: 20120101, end: 20120501

REACTIONS (13)
  - CARDIOMEGALY [None]
  - ARRHYTHMIA [None]
  - TOBACCO USER [None]
  - SOMNOLENCE [None]
  - MALAISE [None]
  - ASTHENIA [None]
  - CARDIAC DISORDER [None]
  - ONYCHOPHAGIA [None]
  - RETCHING [None]
  - DEPRESSION [None]
  - TACHYCARDIA [None]
  - ABDOMINAL PAIN UPPER [None]
  - VEIN PAIN [None]
